FAERS Safety Report 12822443 (Version 1)
Quarter: 2016Q4

REPORT INFORMATION
  Report Type: Spontaneous
  Country: US (occurrence: US)
  Receive Date: 20161006
  Receipt Date: 20161006
  Transmission Date: 20170207
  Serious: No
  Sender: FDA-Public Use
  Company Number: US-SHIONOGI, INC-2016000726

PATIENT
  Age: 68 Year
  Sex: Female

DRUGS (1)
  1. OSPHENA [Suspect]
     Active Substance: OSPEMIFENE
     Indication: PRODUCT USED FOR UNKNOWN INDICATION
     Dosage: 60 MG, QD
     Route: 048
     Dates: start: 20160713, end: 20160715

REACTIONS (3)
  - Genital erythema [Recovered/Resolved]
  - Genital blister [Recovered/Resolved]
  - Genital burning sensation [Recovered/Resolved]

NARRATIVE: CASE EVENT DATE: 20160713
